FAERS Safety Report 24323379 (Version 1)
Quarter: 2024Q3

REPORT INFORMATION
  Report Type: Spontaneous
  Country: CN (occurrence: CN)
  Receive Date: 20240916
  Receipt Date: 20240916
  Transmission Date: 20241016
  Serious: Yes (Life-Threatening, Other)
  Sender: PFIZER
  Company Number: CN-PFIZER INC-PV202400120024

PATIENT
  Sex: Male
  Weight: 0.79 kg

DRUGS (2)
  1. FLUCONAZOLE [Suspect]
     Active Substance: FLUCONAZOLE
     Indication: Fungal infection
     Dosage: 9.3 MG, 1X/DAY
     Route: 041
     Dates: start: 20240826, end: 20240904
  2. CEFOTAXIME SODIUM [Concomitant]
     Active Substance: CEFOTAXIME SODIUM
     Indication: Anti-infective therapy
     Dosage: 40 MG, 2X/DAY
     Route: 041
     Dates: start: 20240826, end: 20240904

REACTIONS (3)
  - Blood potassium increased [Recovering/Resolving]
  - Blood creatinine increased [Recovering/Resolving]
  - Urine output decreased [Recovering/Resolving]

NARRATIVE: CASE EVENT DATE: 20240901
